FAERS Safety Report 6176520-9 (Version None)
Quarter: 2009Q2

REPORT INFORMATION
  Report Type: 
  Country: None (occurrence: None)
  Receive Date: 20090501
  Receipt Date: 20090428
  Transmission Date: 20091009
  Serious: Yes (Other)
  Sender: FDA-Public Use
  Company Number: PHEH2009US03706

PATIENT
  Sex: Male
  Weight: 87.982 kg

DRUGS (7)
  1. TEKTURNA [Suspect]
     Indication: HYPERTENSION
     Dosage: 150 MG, QD
     Route: 048
     Dates: start: 20090304, end: 20090417
  2. METOPROLOL TARTRATE [Concomitant]
     Dosage: 50 MG, UNK
  3. LISINOPRIL [Concomitant]
     Dosage: 20 MG, UNK
  4. HYDROCHLOROTHIAZIDE [Concomitant]
     Dosage: 50 MG, UNK
  5. AMLODIPINE [Concomitant]
     Dosage: 5 MG, UNK
  6. ZOCOR [Concomitant]
     Dosage: 40 MG, UNK
  7. VITAMINS NOS [Concomitant]

REACTIONS (2)
  - BALANCE DISORDER [None]
  - FALL [None]
